FAERS Safety Report 21367885 (Version 1)
Quarter: 2022Q3

REPORT INFORMATION
  Report Type: Spontaneous
  Country: CO (occurrence: None)
  Receive Date: 20220923
  Receipt Date: 20220923
  Transmission Date: 20221026
  Serious: Yes (Hospitalization)
  Sender: FDA-Public Use
  Company Number: CO-ROCHE-3088203

PATIENT
  Age: 3 Year
  Sex: Male
  Weight: 13.2 kg

DRUGS (22)
  1. MABTHERA [Suspect]
     Active Substance: RITUXIMAB
     Indication: Burkitt^s lymphoma
     Dosage: UNIQUE DOSE
     Route: 041
     Dates: start: 20220228, end: 20220228
  2. MABTHERA [Suspect]
     Active Substance: RITUXIMAB
     Route: 041
     Dates: start: 20220211
  3. MABTHERA [Suspect]
     Active Substance: RITUXIMAB
     Route: 041
     Dates: start: 20220228
  4. MABTHERA [Suspect]
     Active Substance: RITUXIMAB
     Route: 041
     Dates: start: 20220314
  5. MABTHERA [Suspect]
     Active Substance: RITUXIMAB
     Route: 041
     Dates: start: 20220331
  6. ACETAMINOPHEN [Concomitant]
     Active Substance: ACETAMINOPHEN
     Indication: Premedication
     Route: 048
     Dates: start: 20220228, end: 20220228
  7. DEXAMETHASONE [Concomitant]
     Active Substance: DEXAMETHASONE
     Indication: Premedication
     Route: 042
     Dates: start: 20220228, end: 20220228
  8. DEXAMETHASONE [Concomitant]
     Active Substance: DEXAMETHASONE
     Dosage: DOSE ON 06/JUN, 07/JUN, 08/JUN, 09/JUN, 10/JUN
  9. CHLORPHENIRAMINE [Concomitant]
     Active Substance: CHLORPHENIRAMINE
     Indication: Premedication
     Route: 048
     Dates: start: 20220228, end: 20220228
  10. CEFEPIME [Concomitant]
     Active Substance: CEFEPIME HYDROCHLORIDE
     Indication: Antibiotic therapy
     Route: 042
     Dates: start: 20220221, end: 20220302
  11. VINCRISTINE [Concomitant]
     Active Substance: VINCRISTINE
     Dosage: START DATE:06/JUN
  12. ETOPOSIDE [Concomitant]
     Active Substance: ETOPOSIDE
     Dosage: START DATE:08/JUN, 09/JUN, 10/JUN
  13. PEGFILGRASTIM [Concomitant]
     Active Substance: PEGFILGRASTIM
     Dosage: START DATE: 11/JUN
  14. IFOSFAMIDE [Concomitant]
     Active Substance: IFOSFAMIDE
  15. METHOTREXATE [Concomitant]
     Active Substance: METHOTREXATE
  16. HYDROCORTISONE [Concomitant]
     Active Substance: HYDROCORTISONE
     Dates: start: 20220228
  17. CLEMASTINE [Concomitant]
     Active Substance: CLEMASTINE
     Dates: start: 20220228
  18. CHLORPHENIRAMINE MALEATE [Concomitant]
     Active Substance: CHLORPHENIRAMINE MALEATE
     Dates: start: 20220228
  19. LEUCOVORIN CALCIUM [Concomitant]
     Active Substance: LEUCOVORIN CALCIUM
  20. MESNA [Concomitant]
     Active Substance: MESNA
  21. CYCLOPHOSPHAMIDE [Concomitant]
     Active Substance: CYCLOPHOSPHAMIDE
  22. CYTARABINE [Concomitant]
     Active Substance: CYTARABINE

REACTIONS (7)
  - Hypersensitivity [Recovered/Resolved]
  - Erythema [Recovered/Resolved]
  - Vomiting [Unknown]
  - Hypoxia [Unknown]
  - Tachycardia [Unknown]
  - Erythema of eyelid [Unknown]
  - Neoplasm [Unknown]

NARRATIVE: CASE EVENT DATE: 20220228
